FAERS Safety Report 13325127 (Version 2)
Quarter: 2017Q1

REPORT INFORMATION
  Report Type: Report from Study
  Country: None (occurrence: US)
  Receive Date: 20170310
  Receipt Date: 20170313
  Transmission Date: 20170428
  Serious: Yes (Hospitalization, Other)
  Sender: FDA-Public Use
  Company Number: US-ABBVIE-17K-163-1851837-00

PATIENT
  Sex: Female

DRUGS (2)
  1. HUMIRA [Suspect]
     Active Substance: ADALIMUMAB
     Indication: RHEUMATOID ARTHRITIS
     Route: 058
     Dates: start: 2006
  2. HUMIRA [Suspect]
     Active Substance: ADALIMUMAB
     Route: 058

REACTIONS (7)
  - Cystitis [Not Recovered/Not Resolved]
  - Bladder pain [Recovered/Resolved]
  - Pollakiuria [Not Recovered/Not Resolved]
  - Urinary tract infection [Unknown]
  - Micturition urgency [Not Recovered/Not Resolved]
  - Device deployment issue [Unknown]
  - Bladder prolapse [Not Recovered/Not Resolved]

NARRATIVE: CASE EVENT DATE: 2007
